FAERS Safety Report 9451009 (Version 3)
Quarter: 2014Q3

REPORT INFORMATION
  Report Type: Spontaneous
  Country: DK (occurrence: None)
  Receive Date: 20130807
  Receipt Date: 20140826
  Transmission Date: 20150326
  Serious: Yes (Hospitalization, Congenital Anomaly, Other)
  Sender: FDA-Public Use
  Company Number: AUR-APL-2013-06441

PATIENT
  Age: 0 Day
  Sex: Female
  Weight: 2.3 kg

DRUGS (1)
  1. LAMOTRIGINE ^AUROBINDO^, TABLETTER 200 MG(LAMOTRIGINE) TABLET, 200MG [Suspect]
     Active Substance: LAMOTRIGINE
     Indication: EPILEPSY
     Route: 064
     Dates: start: 2009

REACTIONS (5)
  - Patent ductus arteriosus [None]
  - Maternal drugs affecting foetus [None]
  - DiGeorge^s syndrome [None]
  - Asthma [None]
  - Pulmonary hypertension [None]

NARRATIVE: CASE EVENT DATE: 201305
